FAERS Safety Report 15298896 (Version 2)
Quarter: 2018Q4

REPORT INFORMATION
  Report Type: Spontaneous
  Country: US (occurrence: US)
  Receive Date: 20180821
  Receipt Date: 20181127
  Transmission Date: 20190204
  Serious: No
  Sender: FDA-Public Use
  Company Number: US-TEVA-2018-US-944993

PATIENT

DRUGS (1)
  1. CLONAZEPAM ACTAVIS [Suspect]
     Active Substance: CLONAZEPAM
     Route: 065

REACTIONS (2)
  - Drug ineffective [Unknown]
  - Adverse drug reaction [Unknown]
